FAERS Safety Report 13363412 (Version 1)
Quarter: 2017Q1

REPORT INFORMATION
  Report Type: Spontaneous
  Country: FR (occurrence: FR)
  Receive Date: 20170323
  Receipt Date: 20170323
  Transmission Date: 20170429
  Serious: Yes (Life-Threatening)
  Sender: FDA-Public Use
  Company Number: FR-PFIZER INC-2017124390

PATIENT
  Age: 66 Year
  Sex: Male

DRUGS (4)
  1. GEMCITABINE HYDROCHLORIDE. [Suspect]
     Active Substance: GEMCITABINE HYDROCHLORIDE
     Dosage: 800 MG/M2, UNK
     Route: 042
     Dates: start: 20170215, end: 20170215
  2. OXALIPLATIN. [Suspect]
     Active Substance: OXALIPLATIN
     Dosage: 80 MG/M2, UNK
     Route: 042
     Dates: start: 20170215, end: 20170215
  3. OXALIPLATIN. [Suspect]
     Active Substance: OXALIPLATIN
     Indication: NEUROENDOCRINE TUMOUR
     Dosage: UNK
     Route: 042
     Dates: start: 20170214, end: 20170214
  4. GEMCITABINE HYDROCHLORIDE. [Suspect]
     Active Substance: GEMCITABINE HYDROCHLORIDE
     Indication: NEUROENDOCRINE TUMOUR
     Dosage: UNK
     Route: 042
     Dates: start: 20170214, end: 20170214

REACTIONS (3)
  - Confusional state [Recovered/Resolved]
  - Coma [Recovered/Resolved]
  - Nausea [Recovered/Resolved]

NARRATIVE: CASE EVENT DATE: 20170215
